FAERS Safety Report 24812277 (Version 3)
Quarter: 2025Q3

REPORT INFORMATION
  Report Type: Spontaneous
  Country: EU (occurrence: EU)
  Receive Date: 20250106
  Receipt Date: 20250923
  Transmission Date: 20251021
  Serious: Yes (Other)
  Sender: SANOFI AVENTIS
  Company Number: EU-EMA-20160816-rpatevhp-140423093

PATIENT
  Age: 54 Year
  Sex: Female

DRUGS (47)
  1. AFLIBERCEPT [Suspect]
     Active Substance: AFLIBERCEPT
     Indication: Invasive ductal breast carcinoma
     Dosage: 2 MG/KG, Q3W
  2. AFLIBERCEPT [Suspect]
     Active Substance: AFLIBERCEPT
     Indication: HER2 positive breast cancer
  3. AFLIBERCEPT [Suspect]
     Active Substance: AFLIBERCEPT
     Indication: Metastases to pleura
  4. AFLIBERCEPT [Suspect]
     Active Substance: AFLIBERCEPT
     Indication: Metastases to heart
  5. AFLIBERCEPT [Suspect]
     Active Substance: AFLIBERCEPT
     Indication: Breast cancer metastatic
  6. AFLIBERCEPT [Suspect]
     Active Substance: AFLIBERCEPT
     Indication: Lymphangiosis carcinomatosa
  7. AFLIBERCEPT [Suspect]
     Active Substance: AFLIBERCEPT
     Indication: Skin cancer
  8. AFLIBERCEPT [Suspect]
     Active Substance: AFLIBERCEPT
     Indication: Metastases to bone
  9. CAPECITABINE [Suspect]
     Active Substance: CAPECITABINE
     Indication: Invasive ductal breast carcinoma
     Dates: start: 200701, end: 2007
  10. CAPECITABINE [Suspect]
     Active Substance: CAPECITABINE
     Indication: HER2 positive breast cancer
  11. CAPECITABINE [Suspect]
     Active Substance: CAPECITABINE
     Indication: Metastases to bone
  12. CAPECITABINE [Suspect]
     Active Substance: CAPECITABINE
     Indication: Lymphangiosis carcinomatosa
  13. CAPECITABINE [Suspect]
     Active Substance: CAPECITABINE
     Indication: Skin cancer
  14. CYCLOPHOSPHAMIDE [Suspect]
     Active Substance: CYCLOPHOSPHAMIDE
     Indication: HER2 positive breast cancer
     Dates: start: 2006
  15. CYCLOPHOSPHAMIDE [Suspect]
     Active Substance: CYCLOPHOSPHAMIDE
     Indication: Breast cancer metastatic
  16. CYCLOPHOSPHAMIDE [Suspect]
     Active Substance: CYCLOPHOSPHAMIDE
     Indication: Invasive ductal breast carcinoma
  17. CYCLOPHOSPHAMIDE [Suspect]
     Active Substance: CYCLOPHOSPHAMIDE
     Indication: Metastases to bone
  18. DOCETAXEL [Suspect]
     Active Substance: DOCETAXEL
     Indication: Invasive ductal breast carcinoma
     Dosage: 75 MG/M2, Q3W
     Dates: start: 200708
  19. DOCETAXEL [Suspect]
     Active Substance: DOCETAXEL
     Indication: HER2 positive breast cancer
  20. DOCETAXEL [Suspect]
     Active Substance: DOCETAXEL
     Indication: Breast cancer metastatic
  21. DOCETAXEL [Suspect]
     Active Substance: DOCETAXEL
     Indication: Metastases to bone
  22. DOCETAXEL [Suspect]
     Active Substance: DOCETAXEL
     Indication: Lymphangiosis carcinomatosa
  23. DOCETAXEL [Suspect]
     Active Substance: DOCETAXEL
     Indication: Metastases to pleura
  24. DOCETAXEL [Suspect]
     Active Substance: DOCETAXEL
     Indication: Metastases to heart
  25. DOCETAXEL [Suspect]
     Active Substance: DOCETAXEL
     Indication: Skin cancer
  26. LAPATINIB [Suspect]
     Active Substance: LAPATINIB
     Indication: HER2 positive breast cancer
     Dates: start: 200705, end: 2007
  27. LAPATINIB [Suspect]
     Active Substance: LAPATINIB
     Indication: Lymphangiosis carcinomatosa
  28. LAPATINIB [Suspect]
     Active Substance: LAPATINIB
     Indication: Invasive ductal breast carcinoma
  29. LAPATINIB [Suspect]
     Active Substance: LAPATINIB
     Indication: Breast cancer metastatic
  30. LAPATINIB [Suspect]
     Active Substance: LAPATINIB
     Indication: Metastases to bone
  31. LAPATINIB [Suspect]
     Active Substance: LAPATINIB
     Indication: Skin cancer
  32. EPIRUBICIN [Suspect]
     Active Substance: EPIRUBICIN
     Indication: HER2 positive breast cancer
     Dates: start: 2006
  33. EPIRUBICIN [Suspect]
     Active Substance: EPIRUBICIN
     Indication: Invasive ductal breast carcinoma
  34. EPIRUBICIN [Suspect]
     Active Substance: EPIRUBICIN
     Indication: Metastases to bone
  35. EPIRUBICIN [Suspect]
     Active Substance: EPIRUBICIN
     Indication: Breast cancer metastatic
  36. FLUOROURACIL [Suspect]
     Active Substance: FLUOROURACIL
     Indication: HER2 positive breast cancer
     Dates: start: 2006
  37. FLUOROURACIL [Suspect]
     Active Substance: FLUOROURACIL
     Indication: Metastases to bone
  38. FLUOROURACIL [Suspect]
     Active Substance: FLUOROURACIL
     Indication: Invasive ductal breast carcinoma
  39. FLUOROURACIL [Suspect]
     Active Substance: FLUOROURACIL
     Indication: Breast cancer metastatic
  40. TRASTUZUMAB [Suspect]
     Active Substance: TRASTUZUMAB
     Indication: HER2 positive breast cancer
     Dates: start: 200603, end: 2006
  41. TRASTUZUMAB [Suspect]
     Active Substance: TRASTUZUMAB
     Indication: Invasive ductal breast carcinoma
  42. TRASTUZUMAB [Suspect]
     Active Substance: TRASTUZUMAB
     Indication: Metastases to bone
  43. TRASTUZUMAB [Suspect]
     Active Substance: TRASTUZUMAB
     Indication: Breast cancer metastatic
  44. VINORELBINE [Suspect]
     Active Substance: VINORELBINE TARTRATE
     Indication: HER2 positive breast cancer
     Dates: start: 200603, end: 2006
  45. VINORELBINE [Suspect]
     Active Substance: VINORELBINE TARTRATE
     Indication: Invasive ductal breast carcinoma
  46. VINORELBINE [Suspect]
     Active Substance: VINORELBINE TARTRATE
     Indication: Metastases to bone
  47. VINORELBINE [Suspect]
     Active Substance: VINORELBINE TARTRATE
     Indication: Breast cancer metastatic

REACTIONS (4)
  - Hyperthermia [Unknown]
  - Anaemia [Unknown]
  - Asthenia [Unknown]
  - Palmar-plantar erythrodysaesthesia syndrome [Unknown]
